FAERS Safety Report 10714234 (Version 2)
Quarter: 2016Q3

REPORT INFORMATION
  Report Type: Spontaneous
  Country: US (occurrence: US)
  Receive Date: 20150115
  Receipt Date: 20160718
  Transmission Date: 20161109
  Serious: No
  Sender: FDA-Public Use
  Company Number: US-ASTELLAS-2014US016767

PATIENT
  Age: 74 Year
  Sex: Female

DRUGS (1)
  1. MYRBETRIQ [Suspect]
     Active Substance: MIRABEGRON
     Indication: HYPERTONIC BLADDER
     Route: 065
     Dates: start: 201409

REACTIONS (8)
  - Stress [Unknown]
  - Urinary retention [Unknown]
  - Drug dose omission [Unknown]
  - Drug ineffective [Unknown]
  - Polydipsia [Unknown]
  - Rhinorrhoea [Unknown]
  - Urinary tract infection [Unknown]
  - Treatment noncompliance [Unknown]
